FAERS Safety Report 13132938 (Version 8)
Quarter: 2017Q3

REPORT INFORMATION
  Report Type: Spontaneous
  Country: JP (occurrence: JP)
  Receive Date: 20170120
  Receipt Date: 20170706
  Transmission Date: 20171127
  Serious: Yes (Hospitalization, Other)
  Sender: FDA-Public Use
  Company Number: JP-BIOVITRUM-2017JP0047

PATIENT
  Age: 1 Year
  Sex: Male
  Weight: 9 kg

DRUGS (8)
  1. ALFAROL [Concomitant]
     Active Substance: ALFACALCIDOL
     Route: 048
     Dates: start: 20160818, end: 20161201
  2. ORFADIN [Suspect]
     Active Substance: NITISINONE
     Route: 048
     Dates: start: 20160829, end: 20161201
  3. ORFADIN [Suspect]
     Active Substance: NITISINONE
     Indication: TYROSINAEMIA
     Route: 048
     Dates: start: 20160812, end: 20160818
  4. ORFADIN [Suspect]
     Active Substance: NITISINONE
     Route: 048
     Dates: start: 20160819, end: 20160828
  5. PROGRAF [Suspect]
     Active Substance: TACROLIMUS\TACROLIMUS ANHYDROUS
     Indication: PROPHYLAXIS
     Dates: start: 20161202, end: 20161206
  6. INCREMIN [Concomitant]
     Active Substance: FERRIC PYROPHOSPHATE
     Dates: start: 20160824, end: 20161201
  7. GLUCONSAN K [Concomitant]
     Route: 048
     Dates: start: 20160902, end: 20161201
  8. NICARDIPINE HYDROCHLORIDE. [Concomitant]
     Active Substance: NICARDIPINE HYDROCHLORIDE
     Dates: start: 20161204, end: 20161214

REACTIONS (3)
  - Seizure [Recovered/Resolved]
  - Liver transplant [Unknown]
  - Intentional product misuse [Unknown]

NARRATIVE: CASE EVENT DATE: 20160812
